FAERS Safety Report 10926489 (Version 4)
Quarter: 2015Q2

REPORT INFORMATION
  Report Type: Report from Study
  Country: DE (occurrence: DE)
  Receive Date: 20150318
  Receipt Date: 20150501
  Transmission Date: 20150821
  Serious: Yes (Death, Life-Threatening, Hospitalization)
  Sender: FDA-Public Use
  Company Number: DE-CELGENE-DEU-2015025218

PATIENT
  Age: 62 Year
  Sex: Female
  Weight: 63.9 kg

DRUGS (47)
  1. PARACETAMOL [Concomitant]
     Active Substance: ACETAMINOPHEN
     Indication: PAIN
     Route: 041
     Dates: start: 20150126, end: 20150317
  2. VFEND [Concomitant]
     Active Substance: VORICONAZOLE
     Indication: PNEUMONIA
     Route: 048
     Dates: end: 20150130
  3. CEFTAZIDIM [Concomitant]
     Active Substance: CEFTAZIDIME
     Indication: PNEUMONIA
     Route: 041
     Dates: start: 20150127, end: 20150207
  4. TAVOR [Concomitant]
     Active Substance: LORAZEPAM
     Indication: ANXIETY
     Route: 048
     Dates: end: 20150127
  5. VANCOMYCIN [Concomitant]
     Active Substance: VANCOMYCIN
     Indication: SEPSIS
  6. VOMEX [Concomitant]
     Active Substance: DIMENHYDRINATE
     Indication: PRODUCT USED FOR UNKNOWN INDICATION
     Route: 041
     Dates: start: 20150126, end: 20150303
  7. PIRITRAMID [Concomitant]
     Route: 048
     Dates: start: 20150303, end: 20150303
  8. IBUPROFEN. [Concomitant]
     Active Substance: IBUPROFEN
     Indication: PAIN
     Route: 048
     Dates: start: 20150302, end: 20150302
  9. INNOHEP [Concomitant]
     Active Substance: TINZAPARIN SODIUM
     Indication: CAROTID ARTERIOSCLEROSIS
     Route: 058
     Dates: start: 20150305, end: 20150306
  10. CITALOPRAM [Concomitant]
     Active Substance: CITALOPRAM HYDROBROMIDE
     Indication: ANXIETY
     Route: 048
     Dates: end: 20150304
  11. MUCOSOLVAN [Concomitant]
     Active Substance: AMBROXOL\CLENBUTEROL
     Indication: PNEUMONIA
     Route: 048
     Dates: end: 20150126
  12. PIRITRAMID [Concomitant]
     Indication: PAIN
     Route: 041
     Dates: start: 20150127, end: 20150211
  13. MERONEM [Concomitant]
     Active Substance: MEROPENEM
     Indication: PNEUMONIA
     Route: 041
     Dates: start: 20150211, end: 20150218
  14. ACICLOVIR [Concomitant]
     Active Substance: ACYCLOVIR
     Indication: PNEUMONIA
     Route: 041
     Dates: start: 20150224, end: 20150303
  15. LASIX [Concomitant]
     Active Substance: FUROSEMIDE
     Indication: OEDEMA PERIPHERAL
     Route: 041
     Dates: start: 20150301, end: 20150319
  16. IBUPROFEN. [Concomitant]
     Active Substance: IBUPROFEN
     Route: 048
     Dates: start: 20150205, end: 20150301
  17. SULTANOL [Concomitant]
     Active Substance: ALBUTEROL SULFATE
     Indication: PRODUCT USED FOR UNKNOWN INDICATION
     Route: 065
     Dates: start: 20150303, end: 20150308
  18. MOVIPREP [Concomitant]
     Active Substance: ASCORBIC ACID\POLYETHYLENE GLYCOL 3350\POTASSIUM CHLORIDE\SODIUM ASCORBATE\SODIUM CHLORIDE\SODIUM SULFATE
     Indication: PRODUCT USED FOR UNKNOWN INDICATION
     Route: 048
     Dates: start: 20150304, end: 20150304
  19. AZACITIDINE INJECTABLE [Suspect]
     Active Substance: AZACITIDINE
     Route: 058
     Dates: start: 20150225, end: 20150302
  20. CEFTRIAXON [Concomitant]
     Active Substance: CEFTRIAXONE
     Indication: PNEUMONIA
     Route: 041
     Dates: end: 20150127
  21. TRAMAL [Concomitant]
     Active Substance: TRAMADOL
     Route: 048
     Dates: start: 20150205, end: 20150301
  22. FRAXIPARIN [Concomitant]
     Active Substance: NADROPARIN CALCIUM
     Route: 041
     Dates: start: 20150211, end: 20150222
  23. PIPERACILLIN/TAZOBACTAM [Concomitant]
     Active Substance: PIPERACILLIN SODIUM\TAZOBACTAM SODIUM
     Route: 041
     Dates: start: 20150221, end: 20150304
  24. VALORON [Concomitant]
     Active Substance: TILIDINE HYDROCHLORIDE
     Indication: PAIN
     Route: 048
     Dates: start: 20150301, end: 20150301
  25. BERIPLEX HS [Concomitant]
     Active Substance: COAGULATION FACTOR IX HUMAN\COAGULATION FACTOR VII HUMAN\COAGULATION FACTOR X HUMAN\PROTEIN C\PROTEIN S HUMAN\PROTHROMBIN
     Indication: PULMONARY HAEMORRHAGE
     Route: 041
     Dates: start: 20150319, end: 20150319
  26. TRAMAL [Concomitant]
     Active Substance: TRAMADOL
     Indication: PAIN
     Route: 048
     Dates: start: 20150126, end: 20150127
  27. PYRILAX [Concomitant]
     Indication: PRODUCT USED FOR UNKNOWN INDICATION
     Route: 054
     Dates: start: 20150212, end: 20150215
  28. MILAX [Concomitant]
     Indication: PRODUCT USED FOR UNKNOWN INDICATION
     Route: 054
     Dates: start: 20150220, end: 201502
  29. CYKLOKAPRON [Concomitant]
     Active Substance: TRANEXAMIC ACID
     Indication: PULMONARY HAEMORRHAGE
     Route: 041
     Dates: start: 20150319, end: 20150322
  30. AMIKACIN [Concomitant]
     Active Substance: AMIKACIN
     Indication: PNEUMONIA
     Route: 041
     Dates: start: 20150127, end: 20150307
  31. PIPERACILLIN/TAZOBACTAM [Concomitant]
     Active Substance: PIPERACILLIN SODIUM\TAZOBACTAM SODIUM
     Indication: PNEUMONIA
     Route: 041
     Dates: start: 20150207, end: 20150211
  32. VALORON [Concomitant]
     Active Substance: TILIDINE HYDROCHLORIDE
     Route: 048
     Dates: start: 20150205, end: 20150301
  33. AZACITIDINE INJECTABLE [Suspect]
     Active Substance: AZACITIDINE
     Indication: ACUTE MYELOID LEUKAEMIA
     Route: 058
     Dates: start: 20150128
  34. KLACID [Concomitant]
     Active Substance: CLARITHROMYCIN
     Indication: PNEUMONIA
     Route: 041
     Dates: start: 20150126, end: 20150211
  35. TOREM [Concomitant]
     Active Substance: TORSEMIDE
     Indication: PLEURAL EFFUSION
     Route: 048
     Dates: end: 20150224
  36. VANCOMYCIN [Concomitant]
     Active Substance: VANCOMYCIN
     Indication: PNEUMONIA RESPIRATORY SYNCYTIAL VIRAL
     Route: 041
     Dates: start: 20150127, end: 20150308
  37. MSI [Concomitant]
     Active Substance: MORPHINE SULFATE
     Indication: PAIN
     Route: 041
     Dates: start: 20150212, end: 20150304
  38. CIPROFLOXACIN. [Concomitant]
     Active Substance: CIPROFLOXACIN
     Indication: PNEUMONIA
     Route: 041
     Dates: start: 20150220, end: 20150222
  39. ATROVENT [Concomitant]
     Active Substance: IPRATROPIUM BROMIDE
     Indication: PRODUCT USED FOR UNKNOWN INDICATION
     Route: 065
     Dates: start: 20150303, end: 20150308
  40. FIBROGAMMIN [Concomitant]
     Active Substance: FACTOR XIII CONCENTRATE (HUMAN)
     Indication: PULMONARY HAEMORRHAGE
     Route: 041
     Dates: start: 20150319, end: 20150319
  41. MIDAZOLAM [Concomitant]
     Active Substance: MIDAZOLAM\MIDAZOLAM HYDROCHLORIDE
     Indication: PRODUCT USED FOR UNKNOWN INDICATION
     Route: 065
  42. FRAXIPARIN [Concomitant]
     Active Substance: NADROPARIN CALCIUM
     Indication: PAIN
     Route: 041
     Dates: start: 20150126, end: 20150222
  43. CEFTAZIDIM [Concomitant]
     Active Substance: CEFTAZIDIME
     Route: 041
     Dates: start: 20150320, end: 20150322
  44. DOXY M [Concomitant]
     Indication: PNEUMONIA
     Route: 041
     Dates: start: 20150211, end: 20150222
  45. PREDNISOLONE. [Concomitant]
     Active Substance: PREDNISOLONE
     Indication: HYPOTENSION
     Route: 041
     Dates: start: 20150320, end: 20150320
  46. FENISTIL [Concomitant]
     Active Substance: DIMETHINDENE
     Indication: HYPOTENSION
     Route: 041
     Dates: start: 20150320, end: 20150320
  47. OTRIVEN [Concomitant]
     Active Substance: XYLOMETAZOLINE HYDROCHLORIDE
     Indication: PRODUCT USED FOR UNKNOWN INDICATION
     Route: 065

REACTIONS (5)
  - Pericarditis [Recovered/Resolved with Sequelae]
  - Respiratory failure [Fatal]
  - Viral sepsis [Fatal]
  - Pneumonia respiratory syncytial viral [Fatal]
  - Upper gastrointestinal haemorrhage [Recovered/Resolved]

NARRATIVE: CASE EVENT DATE: 20150222
